FAERS Safety Report 8427941-2 (Version None)
Quarter: 2012Q2

REPORT INFORMATION
  Report Type: 
  Country: None (occurrence: None)
  Receive Date: 20120611
  Receipt Date: 20120528
  Transmission Date: 20120825
  Serious: Yes (Death, Hospitalization, Other)
  Sender: FDA-Public Use
  Company Number: US-MYLANLABS-2009AC000400

PATIENT
  Age: 72 Year
  Sex: Female
  Weight: 76.66 kg

DRUGS (67)
  1. METOCLOPRAMIDE [Concomitant]
  2. DIATX [Concomitant]
  3. GLYCOLAX [Concomitant]
  4. FUROSEMIDE [Concomitant]
  5. BUMETANIDE [Concomitant]
  6. ZOLPIDEM TARTRATE [Concomitant]
  7. LEVAQUIN [Concomitant]
  8. RENAL [Concomitant]
  9. CLONAZEPAM [Concomitant]
  10. CATAPRES-TTS-3 [Concomitant]
  11. DIGOXIN [Suspect]
     Route: 048
     Dates: start: 20021101, end: 20090705
  12. PREMARIN [Concomitant]
  13. TERAZOSIN HCL [Concomitant]
  14. TOBRADEX [Concomitant]
  15. SULFAMETHOXAZOLE AND TRIMETHOPRIM [Concomitant]
  16. PROCHLORPERAZINE [Concomitant]
  17. LEXAPRO [Concomitant]
  18. NIFEDIPINE [Concomitant]
  19. BUMEX [Concomitant]
  20. PROTONIX [Concomitant]
  21. NITROSTAT [Concomitant]
  22. NORVASC [Concomitant]
  23. LIPITOR [Concomitant]
  24. TEMAZEPAM [Concomitant]
  25. TRAMADOL HCL [Concomitant]
  26. SERTRALINE HYDROCHLORIDE [Concomitant]
  27. XANAX [Concomitant]
  28. DOXAZOSIN MESYLATE [Concomitant]
  29. ZOLOFT [Concomitant]
  30. ALBUTEROL [Concomitant]
  31. AMMONIUM LACTATE [Concomitant]
  32. POTASSIUM CHLORIDE [Concomitant]
  33. PREVACID [Concomitant]
  34. COZAAR [Concomitant]
  35. HYDRO-TUSSIN HC [Concomitant]
  36. CARVEDILOL [Concomitant]
  37. CEPHALEXIN [Concomitant]
  38. MEGESTROL ACETATE [Concomitant]
  39. PROMETHAZINE [Concomitant]
  40. ZOCOR [Concomitant]
  41. ZINC SULFATE [Concomitant]
  42. AMBIEN [Concomitant]
  43. HYDROCODONE BITARTRATE + ACETAMINOPHEN [Concomitant]
     Dosage: 5/500MG
  44. HYDRALAZINE HCL [Concomitant]
  45. CARAFATE [Concomitant]
  46. PRILOSEC [Concomitant]
  47. VYTORIN [Concomitant]
  48. PATANOL [Concomitant]
  49. PROPOXYPHENE NAPSYLATE W/ ACETAMINOPHEN [Concomitant]
  50. ACYCLOVIR [Concomitant]
  51. PEG 3350 ELECTROLYTE SOLUTION [Concomitant]
  52. ALDACTONE [Concomitant]
  53. COREG [Concomitant]
  54. WARFARIN [Concomitant]
  55. CARISOPRODOL [Concomitant]
  56. FOLBEE PLUS [Concomitant]
  57. AZITHROMYCIN [Concomitant]
  58. NEXIUM [Concomitant]
  59. SOTALOL HYDROCHLORIDE [Concomitant]
  60. PAROXETINE HCL [Concomitant]
  61. BENZONATATE [Concomitant]
  62. PROCARDIA /00340701/ [Concomitant]
  63. KLOR-CON [Concomitant]
  64. ISOSORBIDE DINITRATE [Concomitant]
  65. PREDNISONE TAB [Concomitant]
  66. IMDUR [Concomitant]
  67. LUNESTA [Concomitant]

REACTIONS (63)
  - CARDIAC FAILURE CONGESTIVE [None]
  - DEVICE PACING ISSUE [None]
  - ELECTROCARDIOGRAM ABNORMAL [None]
  - GALLOP RHYTHM PRESENT [None]
  - HELICOBACTER GASTRITIS [None]
  - INSOMNIA [None]
  - LABORATORY TEST ABNORMAL [None]
  - LEUKOPENIA [None]
  - HYPERTENSION [None]
  - GASTROOESOPHAGEAL REFLUX DISEASE [None]
  - VENTRICULAR FIBRILLATION [None]
  - CHEST PAIN [None]
  - HYPOKALAEMIA [None]
  - PALPITATIONS [None]
  - ROAD TRAFFIC ACCIDENT [None]
  - ECONOMIC PROBLEM [None]
  - ATRIAL FIBRILLATION [None]
  - DEVICE ELECTRICAL FINDING [None]
  - TOXICITY TO VARIOUS AGENTS [None]
  - PLEURAL EFFUSION [None]
  - DIALYSIS [None]
  - VENTRICULAR EXTRASYSTOLES [None]
  - HYPERLIPIDAEMIA [None]
  - RENAL FAILURE [None]
  - MITRAL VALVE INCOMPETENCE [None]
  - CARDIAC MURMUR [None]
  - DIARRHOEA [None]
  - GASTRITIS [None]
  - HEADACHE [None]
  - NAUSEA [None]
  - NECK PAIN [None]
  - POST PROCEDURAL HAEMORRHAGE [None]
  - X-RAY GASTROINTESTINAL TRACT ABNORMAL [None]
  - DEATH [None]
  - ABDOMINAL PAIN UPPER [None]
  - ASTHENIA [None]
  - CONTUSION [None]
  - DYSPHAGIA [None]
  - ENDOSCOPY GASTROINTESTINAL ABNORMAL [None]
  - VOMITING [None]
  - INJURY [None]
  - ILL-DEFINED DISORDER [None]
  - DEVICE MALFUNCTION [None]
  - ARRHYTHMIA [None]
  - ABDOMINAL DISCOMFORT [None]
  - BRONCHITIS [None]
  - DYSPNOEA [None]
  - DYSPNOEA EXERTIONAL [None]
  - ECHOCARDIOGRAM ABNORMAL [None]
  - JOINT RANGE OF MOTION DECREASED [None]
  - OSTEOARTHRITIS [None]
  - SUPRAVENTRICULAR TACHYCARDIA [None]
  - TREATMENT NONCOMPLIANCE [None]
  - DIZZINESS [None]
  - DYSPEPSIA [None]
  - ORTHOPNOEA [None]
  - CARDIOMYOPATHY [None]
  - VENTRICULAR TACHYCARDIA [None]
  - ANXIETY [None]
  - CHRONIC SINUSITIS [None]
  - GASTROENTERITIS [None]
  - PULMONARY OEDEMA [None]
  - SICK SINUS SYNDROME [None]
